FAERS Safety Report 5358436-0 (Version None)
Quarter: 2007Q2

REPORT INFORMATION
  Report Type: 
  Country: None (occurrence: None)
  Receive Date: 20070531
  Receipt Date: 20070319
  Transmission Date: 20071010
  Serious: No
  Sender: FDA-Public Use
  Company Number: 2007MP000143

PATIENT
  Age: 77 Year
  Sex: Female
  Weight: 65.7716 kg

DRUGS (10)
  1. DACOGEN [Suspect]
     Indication: MYELODYSPLASTIC SYNDROME
     Dosage: SEE IMAGE
     Dates: end: 20070205
  2. DACOGEN [Suspect]
     Indication: MYELODYSPLASTIC SYNDROME
     Dosage: SEE IMAGE
  3. DACOGEN [Suspect]
     Indication: MYELODYSPLASTIC SYNDROME
     Dosage: SEE IMAGE
  4. DACOGEN [Suspect]
     Indication: MYELODYSPLASTIC SYNDROME
     Dosage: SEE IMAGE
     Dates: start: 20070319
  5. PRILOSEC [Concomitant]
  6. ZOLOFT [Concomitant]
  7. MULTI-VITAMIN [Concomitant]
  8. CALCIUM CHLORIDE [Concomitant]
  9. MOVE FREE [Concomitant]
  10. LIPITOR [Concomitant]

REACTIONS (3)
  - BLOOD COUNT ABNORMAL [None]
  - OFF LABEL USE [None]
  - URTICARIA [None]
